FAERS Safety Report 6724677-0 (Version None)
Quarter: 2010Q2

REPORT INFORMATION
  Report Type: 
  Country: None (occurrence: None)
  Receive Date: 20100511
  Receipt Date: 20100427
  Transmission Date: 20101027
  Serious: Yes (Hospitalization)
  Sender: FDA-Public Use
  Company Number: A-NJ2010-26058

PATIENT
  Age: 58 Year
  Sex: Female
  Weight: 72.6 kg

DRUGS (10)
  1. TRACLEER [Suspect]
     Indication: PULMONARY ARTERIAL HYPERTENSION
     Dosage: 125 MG, BID, ORAL
     Route: 048
     Dates: start: 20090711, end: 20100301
  2. JANUVIA [Suspect]
     Dosage: 1000 MG, QD, ORAL
     Route: 048
  3. EFFEXOR [Concomitant]
  4. ACIPHEX [Concomitant]
  5. COUMADIN [Concomitant]
  6. INSULIN (INSULIN) [Concomitant]
  7. OXYGEN (OXYGEN) [Concomitant]
  8. VITAMIN B12 [Concomitant]
  9. VOLTAREN [Concomitant]
  10. SYNTHROID [Concomitant]

REACTIONS (4)
  - ASTHENIA [None]
  - DIARRHOEA [None]
  - DYSPNOEA [None]
  - LIVER FUNCTION TEST ABNORMAL [None]
